FAERS Safety Report 15939012 (Version 2)
Quarter: 2019Q1

REPORT INFORMATION
  Report Type: Spontaneous
  Country: US (occurrence: US)
  Receive Date: 20190208
  Receipt Date: 20190225
  Transmission Date: 20190417
  Serious: Yes (Hospitalization)
  Sender: FDA-Public Use
  Company Number: US-JNJFOC-20190201533

PATIENT
  Age: 64 Year
  Sex: Male
  Weight: 76.11 kg

DRUGS (39)
  1. PENTASA [Concomitant]
     Active Substance: MESALAMINE
     Route: 048
  2. DOCUSATE SODIUM. [Concomitant]
     Active Substance: DOCUSATE SODIUM
     Route: 048
  3. BUDESONIDE. [Concomitant]
     Active Substance: BUDESONIDE
     Route: 048
  4. BETAMETHASONE DIPROPIONATE. [Concomitant]
     Active Substance: BETAMETHASONE DIPROPIONATE
     Route: 061
  5. LISINOPRIL. [Concomitant]
     Active Substance: LISINOPRIL
     Route: 048
  6. RANEXA [Concomitant]
     Active Substance: RANOLAZINE
     Route: 065
  7. COBALAMIN [Concomitant]
     Active Substance: COBALAMIN
     Route: 065
  8. REMICADE [Suspect]
     Active Substance: INFLIXIMAB
     Indication: CROHN^S DISEASE
     Route: 042
     Dates: start: 20090731
  9. ISOSORBIDE MONONITRATE. [Concomitant]
     Active Substance: ISOSORBIDE MONONITRATE
     Route: 048
  10. CHOLECALCIFEROL [Concomitant]
     Active Substance: CHOLECALCIFEROL
     Route: 048
  11. LEVETIRACETAM. [Concomitant]
     Active Substance: LEVETIRACETAM
     Route: 048
  12. PANTOPRAZOLE [Concomitant]
     Active Substance: PANTOPRAZOLE
     Route: 048
  13. ISOSORBIDE. [Concomitant]
     Active Substance: ISOSORBIDE
     Route: 065
  14. ATORVASTATIN [Concomitant]
     Active Substance: ATORVASTATIN
     Dosage: QHS
     Route: 048
  15. CLOPIDOGREL [Concomitant]
     Active Substance: CLOPIDOGREL BISULFATE
     Route: 048
  16. CYANOCOBALAMIN. [Concomitant]
     Active Substance: CYANOCOBALAMIN
     Route: 065
  17. MAGNESIUM OXIDE. [Concomitant]
     Active Substance: MAGNESIUM OXIDE
     Route: 048
  18. QUETIAPINE. [Concomitant]
     Active Substance: QUETIAPINE
     Route: 048
  19. NEXIUM [Concomitant]
     Active Substance: ESOMEPRAZOLE MAGNESIUM
     Route: 065
  20. LISINOPRIL. [Concomitant]
     Active Substance: LISINOPRIL
     Route: 065
  21. BISACODYL. [Concomitant]
     Active Substance: BISACODYL
     Route: 065
  22. LIDOCAINE. [Concomitant]
     Active Substance: LIDOCAINE
     Route: 065
  23. POLYETHYLENE GLYCOL 3350. [Concomitant]
     Active Substance: POLYETHYLENE GLYCOL 3350
     Route: 048
  24. EPIPEN [Concomitant]
     Active Substance: EPINEPHRINE
     Route: 065
  25. LIDOCAINE. [Concomitant]
     Active Substance: LIDOCAINE
     Route: 065
  26. SENNA [Concomitant]
     Active Substance: SENNA LEAF\SENNOSIDES\SENNOSIDES A AND B
     Route: 048
  27. AMLODIPINE [Concomitant]
     Active Substance: AMLODIPINE BESYLATE
     Route: 048
  28. VITAMIN D [Concomitant]
     Active Substance: CHOLECALCIFEROL
     Route: 065
  29. KEPPRA [Concomitant]
     Active Substance: LEVETIRACETAM
     Route: 065
  30. ASPIRIN. [Concomitant]
     Active Substance: ASPIRIN
     Route: 048
  31. DECADRON [Concomitant]
     Active Substance: DEXAMETHASONE
     Route: 065
  32. NITROGLYCERIN. [Concomitant]
     Active Substance: NITROGLYCERIN
     Route: 060
  33. RANOLAZINE. [Concomitant]
     Active Substance: RANOLAZINE
     Route: 048
  34. POLYSACCHARIDE IRON [Concomitant]
     Route: 048
  35. PREDNISONE. [Concomitant]
     Active Substance: PREDNISONE
     Route: 048
  36. ACETAMINOPHEN W/HYDROCODONE [Concomitant]
     Active Substance: ACETAMINOPHEN\HYDROCODONE
     Route: 048
  37. ACETAMINOPHEN. [Concomitant]
     Active Substance: ACETAMINOPHEN
     Route: 048
  38. MESALAMINE. [Concomitant]
     Active Substance: MESALAMINE
     Route: 048
  39. SACCHAROMYCES BOULARDII [Concomitant]
     Active Substance: SACCHAROMYCES CEREVISIAE
     Route: 048

REACTIONS (5)
  - Off label use [Unknown]
  - Herpes zoster [Not Recovered/Not Resolved]
  - Cerebrovascular accident [Unknown]
  - Amyloidosis [Unknown]
  - Product use issue [Unknown]

NARRATIVE: CASE EVENT DATE: 20090731
